FAERS Safety Report 6357733-X (Version None)
Quarter: 2009Q3

REPORT INFORMATION
  Report Type: 
  Country: None (occurrence: None)
  Receive Date: 20090911
  Receipt Date: 20090901
  Transmission Date: 20100115
  Serious: Yes (Other)
  Sender: FDA-Public Use
  Company Number: 8051615

PATIENT
  Age: 16 Year
  Sex: Female
  Weight: 82 kg

DRUGS (2)
  1. LEVETIRACETAM [Suspect]
  2. LEVETIRACETAM [Suspect]

REACTIONS (2)
  - ABDOMINAL PAIN UPPER [None]
  - DIARRHOEA [None]
